FAERS Safety Report 24915611 (Version 3)
Quarter: 2025Q1

REPORT INFORMATION
  Report Type: Report from Study
  Country: CA (occurrence: None)
  Receive Date: 20250203
  Receipt Date: 20250321
  Transmission Date: 20250408
  Serious: Yes (Other)
  Sender: ORION
  Company Number: CA-PFIZER INC-202500019258

PATIENT
  Age: 22 Year
  Sex: Male

DRUGS (10)
  1. METHOTREXATE [Suspect]
     Active Substance: METHOTREXATE
     Indication: Crohn^s disease
  2. INFLIXIMAB [Suspect]
     Active Substance: INFLIXIMAB
     Indication: Crohn^s disease
  3. ENTYVIO [Suspect]
     Active Substance: VEDOLIZUMAB
     Indication: Crohn^s disease
  4. ENTYVIO [Suspect]
     Active Substance: VEDOLIZUMAB
  5. ENTYVIO [Suspect]
     Active Substance: VEDOLIZUMAB
  6. ENTYVIO [Suspect]
     Active Substance: VEDOLIZUMAB
  7. ENTYVIO [Suspect]
     Active Substance: VEDOLIZUMAB
  8. ENTYVIO [Suspect]
     Active Substance: VEDOLIZUMAB
  9. ENTYVIO [Suspect]
     Active Substance: VEDOLIZUMAB
  10. RINVOQ [Concomitant]
     Active Substance: UPADACITINIB

REACTIONS (12)
  - Drug ineffective for unapproved indication [Unknown]
  - Crohn^s disease [Unknown]
  - Gastroenteritis viral [Unknown]
  - Gastrointestinal inflammation [Unknown]
  - Asthenia [Unknown]
  - Feeling cold [Unknown]
  - Gait disturbance [Unknown]
  - Muscle atrophy [Unknown]
  - Musculoskeletal stiffness [Unknown]
  - Sitting disability [Unknown]
  - Weight decreased [Unknown]
  - Product use in unapproved indication [Unknown]
